FAERS Safety Report 24688782 (Version 2)
Quarter: 2024Q4

REPORT INFORMATION
  Report Type: Report from Study
  Country: US (occurrence: US)
  Receive Date: 20241203
  Receipt Date: 20241213
  Transmission Date: 20250115
  Serious: Yes (Death, Hospitalization, Disabling, Other)
  Sender: ABBVIE
  Company Number: US-ABBVIE-6028819

PATIENT
  Age: 81 Year
  Sex: Male
  Weight: 66 kg

DRUGS (2)
  1. LUMIGAN [Suspect]
     Active Substance: BIMATOPROST
     Indication: Intraocular pressure test abnormal
     Dosage: STRENGTH: 0.1MG/ML, INSTILL ONE DROP IN EACH EYE EVERY NIGHT AT BEDTIME
     Route: 047
     Dates: start: 2017, end: 202411
  2. LUMIGAN [Suspect]
     Active Substance: BIMATOPROST
     Indication: Glaucoma

REACTIONS (12)
  - Dementia Alzheimer^s type [Fatal]
  - Aortic aneurysm [Not Recovered/Not Resolved]
  - Dysstasia [Not Recovered/Not Resolved]
  - Cerebrovascular accident [Unknown]
  - Pain in extremity [Not Recovered/Not Resolved]
  - Gait inability [Not Recovered/Not Resolved]
  - Cardiac disorder [Not Recovered/Not Resolved]
  - Weight decreased [Not Recovered/Not Resolved]
  - Cardiac disorder [Fatal]
  - Neuropathy peripheral [Not Recovered/Not Resolved]
  - Peripheral swelling [Not Recovered/Not Resolved]
  - Cerebral haemorrhage [Unknown]

NARRATIVE: CASE EVENT DATE: 20180101
